FAERS Safety Report 8795389 (Version 2)
Quarter: 2012Q4

REPORT INFORMATION
  Report Type: 
  Country: US (occurrence: US)
  Receive Date: 20120917
  Receipt Date: 20121019
  Transmission Date: 20130627
  Serious: Yes (Other)
  Sender: FDA-Public Use
  Company Number: US-ROXANE LABORATORIES, INC.-2012-RO-01855RO

PATIENT
  Sex: Female

DRUGS (1)
  1. NARATRIPTAN HYDROCHLORIDE [Suspect]
     Route: 048

REACTIONS (3)
  - Convulsion [Unknown]
  - Syncope [Unknown]
  - Product quality issue [Unknown]
